FAERS Safety Report 9662537 (Version 2)
Quarter: 2013Q4

REPORT INFORMATION
  Report Type: Spontaneous
  Country: US (occurrence: US)
  Receive Date: 20131031
  Receipt Date: 20131031
  Transmission Date: 20140711
  Serious: No
  Sender: FDA-Public Use
  Company Number: US-PURDUE-USA-2010-0056193

PATIENT
  Age: 53 Year
  Sex: Female

DRUGS (3)
  1. OXYCONTIN (NDA 22-272) [Suspect]
     Indication: PAIN
     Dosage: 20 MG, Q12H
     Route: 048
  2. OXYCONTIN (NDA 22-272) [Suspect]
     Dosage: 40 MG, Q12H
     Route: 048
  3. PERCOCET-5 [Concomitant]
     Indication: PRODUCT USED FOR UNKNOWN INDICATION
     Dosage: 5 MG, UNK

REACTIONS (2)
  - Pain [Unknown]
  - Drug ineffective [Recovered/Resolved]
